FAERS Safety Report 7551875-9 (Version None)
Quarter: 2011Q2

REPORT INFORMATION
  Report Type: 
  Country: None (occurrence: None)
  Receive Date: 20110616
  Receipt Date: 20110608
  Transmission Date: 20111010
  Serious: Yes (Other)
  Sender: FDA-Public Use
  Company Number: PHHY2011US50197

PATIENT
  Age: 83 Year
  Sex: Male

DRUGS (3)
  1. OXALIPLATIN [Suspect]
     Dosage: UNK
  2. FLUOROURACIL [Suspect]
     Indication: OESOPHAGEAL ADENOCARCINOMA
  3. LEUCOVORIN CALCIUM [Suspect]

REACTIONS (10)
  - TACHYCARDIA [None]
  - ELECTROCARDIOGRAM ST SEGMENT ELEVATION [None]
  - ELECTROCARDIOGRAM ABNORMAL [None]
  - BUNDLE BRANCH BLOCK [None]
  - CHEST PAIN [None]
  - TACHYPNOEA [None]
  - TROPONIN T INCREASED [None]
  - MYOPERICARDITIS [None]
  - DYSPNOEA [None]
  - SINUS TACHYCARDIA [None]
